FAERS Safety Report 7226412-9 (Version None)
Quarter: 2011Q1

REPORT INFORMATION
  Report Type: 
  Country: None (occurrence: None)
  Receive Date: 20110110
  Receipt Date: 20110110
  Transmission Date: 20110831
  Serious: Yes (Other)
  Sender: FDA-Public Use
  Company Number: None

PATIENT
  Age: 56 Year
  Sex: Male
  Weight: 86.1834 kg

DRUGS (1)
  1. NADOLOL [Suspect]
     Indication: HYPERTENSION
     Dosage: 40MG ONCE DAILY PO
     Route: 048
     Dates: start: 20101113, end: 20101231

REACTIONS (8)
  - IMPAIRED DRIVING ABILITY [None]
  - PRODUCT CONTAMINATION [None]
  - PRODUCT SUBSTITUTION ISSUE [None]
  - HEART RATE DECREASED [None]
  - DIZZINESS [None]
  - PALPITATIONS [None]
  - HYPOTENSION [None]
  - CHEST PAIN [None]
